FAERS Safety Report 6587532-5 (Version None)
Quarter: 2010Q1

REPORT INFORMATION
  Report Type: 
  Country: None (occurrence: None)
  Receive Date: 20100218
  Receipt Date: 20100216
  Transmission Date: 20100710
  Serious: Yes (Other)
  Sender: FDA-Public Use
  Company Number: US-ASTRAZENECA-2009UW21082

PATIENT
  Age: 44 Year
  Sex: Female
  Weight: 100.7 kg

DRUGS (5)
  1. SEROQUEL [Suspect]
     Indication: DEPRESSION
     Route: 048
     Dates: start: 20020101
  2. SEROQUEL [Suspect]
     Indication: SCHIZOPHRENIA
     Route: 048
     Dates: start: 20020101
  3. SEROQUEL [Suspect]
     Indication: BIPOLAR DISORDER
     Route: 048
     Dates: start: 20020101
  4. DEPAKOTE [Concomitant]
     Dates: start: 20060101
  5. LIPITOR [Concomitant]
     Dates: start: 20020101

REACTIONS (8)
  - BLOOD CHOLESTEROL INCREASED [None]
  - BLOOD TRIGLYCERIDES INCREASED [None]
  - BREAST CANCER [None]
  - EYE DISORDER [None]
  - HYPERLIPIDAEMIA [None]
  - NEPHROLITHIASIS [None]
  - OBESITY [None]
  - TYPE 2 DIABETES MELLITUS [None]
